FAERS Safety Report 13686924 (Version 1)
Quarter: 2017Q2

REPORT INFORMATION
  Report Type: Spontaneous
  Country: IN (occurrence: IN)
  Receive Date: 20170623
  Receipt Date: 20170623
  Transmission Date: 20170830
  Serious: Yes (Other)
  Sender: FDA-Public Use
  Company Number: IN-PFIZER INC-2017246491

PATIENT
  Age: 77 Year
  Sex: Female

DRUGS (1)
  1. PALBACE [Suspect]
     Active Substance: PALBOCICLIB
     Indication: BREAST CANCER METASTATIC
     Dosage: 125 MG, UNK
     Route: 048
     Dates: start: 20170528, end: 20170612

REACTIONS (8)
  - Platelet count decreased [Unknown]
  - Rash [Unknown]
  - Bedridden [Unknown]
  - Restlessness [Unknown]
  - Asthenia [Unknown]
  - Neoplasm progression [Unknown]
  - Fatigue [Unknown]
  - Internal haemorrhage [Unknown]
